FAERS Safety Report 6453347-1 (Version None)
Quarter: 2009Q4

REPORT INFORMATION
  Report Type: 
  Country: None (occurrence: None)
  Receive Date: 20091124
  Receipt Date: 20091120
  Transmission Date: 20100525
  Serious: Yes (Other)
  Sender: FDA-Public Use
  Company Number: FR-WYE-G04934609

PATIENT
  Age: 21 Month
  Sex: Male

DRUGS (6)
  1. ADVIL ENFANTS ET NOURRISSONS [Suspect]
     Indication: PYREXIA
     Dosage: 2 DOSES-FORM
     Route: 048
     Dates: start: 20091101, end: 20091101
  2. ADVIL ENFANTS ET NOURRISSONS [Suspect]
     Indication: OROPHARYNGEAL PAIN
  3. ANTIBIOTICS FOR TOPICAL USE [Suspect]
     Indication: SCRATCH
     Dosage: UNKNOWN
     Route: 061
     Dates: start: 20091116, end: 20091116
  4. ANTIBIOTICS FOR TOPICAL USE [Suspect]
     Indication: ECZEMA
  5. DOLIPRANE [Suspect]
     Indication: PYREXIA
     Dosage: UNKNOWN
     Route: 048
     Dates: start: 20091101, end: 20091101
  6. DOLIPRANE [Suspect]
     Indication: OROPHARYNGEAL PAIN

REACTIONS (6)
  - BLISTER [None]
  - CONDITION AGGRAVATED [None]
  - ECZEMA [None]
  - INFECTION [None]
  - INFLAMMATION [None]
  - SCRATCH [None]
